FAERS Safety Report 14961637 (Version 1)
Quarter: 2018Q2

REPORT INFORMATION
  Report Type: Spontaneous
  Country: GB (occurrence: GB)
  Receive Date: 20180601
  Receipt Date: 20180601
  Transmission Date: 20180711
  Serious: Yes (Hospitalization)
  Sender: FDA-Public Use
  Company Number: GB-SUN PHARMACEUTICAL INDUSTRIES LTD-2018RR-174446

PATIENT
  Age: 77 Year
  Sex: Female

DRUGS (1)
  1. DONEPEZIL. [Suspect]
     Active Substance: DONEPEZIL
     Indication: PRODUCT USED FOR UNKNOWN INDICATION
     Dosage: 5 MG, DAILY
     Route: 065

REACTIONS (15)
  - Pollakiuria [Unknown]
  - Rhinorrhoea [Unknown]
  - Polydipsia [Unknown]
  - Nightmare [Unknown]
  - Urinary incontinence [Unknown]
  - Syncope [Unknown]
  - Anal incontinence [Unknown]
  - Tremor [Unknown]
  - Hypopnoea [Unknown]
  - Hallucination, visual [Unknown]
  - Dysphonia [Unknown]
  - Blood glucose fluctuation [Unknown]
  - Crying [Unknown]
  - Skin discolouration [Unknown]
  - Abnormal behaviour [Unknown]
